FAERS Safety Report 4283485-3 (Version None)
Quarter: 2004Q1

REPORT INFORMATION
  Report Type: 
  Country: None (occurrence: None)
  Receive Date: 20040115
  Receipt Date: 20031112
  Transmission Date: 20041129
  Serious: Yes (Other)
  Sender: FDA-Public Use
  Company Number: US-JNJFOC-20031102424

PATIENT
  Age: 71 Year
  Sex: Female

DRUGS (3)
  1. DOXIL [Suspect]
     Indication: MULTIPLE MYELOMA
     Dosage: SEE IMAGE
     Route: 042
     Dates: end: 20031013
  2. DOXIL [Suspect]
     Indication: MULTIPLE MYELOMA
     Dosage: SEE IMAGE
     Route: 042
     Dates: start: 20030203
  3. PROCRIT [Suspect]
     Indication: DRUG USE FOR UNKNOWN INDICATION

REACTIONS (1)
  - BONE MARROW DEPRESSION [None]
